FAERS Safety Report 17011728 (Version 9)
Quarter: 2020Q4

REPORT INFORMATION
  Report Type: Spontaneous
  Country: US (occurrence: US)
  Receive Date: 20191108
  Receipt Date: 20201027
  Transmission Date: 20210113
  Serious: Yes (Other)
  Sender: FDA-Public Use
  Company Number: US-PFIZER INC-2019105104

PATIENT
  Age: 62 Year
  Sex: Female
  Weight: 71 kg

DRUGS (5)
  1. LYRICA [Suspect]
     Active Substance: PREGABALIN
     Indication: NEUROPATHY PERIPHERAL
     Dosage: 100 MG, 3X/DAY
     Route: 048
     Dates: start: 200609
  2. LYRICA [Suspect]
     Active Substance: PREGABALIN
     Indication: ARTHRITIS
     Dosage: 1 DF, 1X/DAY
  3. LYRICA [Suspect]
     Active Substance: PREGABALIN
     Indication: DIABETES MELLITUS
  4. LYRICA [Suspect]
     Active Substance: PREGABALIN
     Indication: HERPES ZOSTER
     Dosage: 150 MG, 3X/DAY (150 MG CAPSULE BY MOUTH THREE TIMES A DAY)
     Route: 048
  5. LYRICA [Suspect]
     Active Substance: PREGABALIN
     Indication: FIBROMYALGIA
     Dosage: 100 MG, 2X/DAY (TWICE DAILY)
     Route: 048
     Dates: start: 201908

REACTIONS (8)
  - Discomfort [Unknown]
  - Therapeutic response unexpected [Unknown]
  - Weight decreased [Unknown]
  - Osteoporosis [Unknown]
  - Weight increased [Unknown]
  - Diabetes mellitus [Recovering/Resolving]
  - Intentional product use issue [Unknown]
  - Condition aggravated [Recovered/Resolved]

NARRATIVE: CASE EVENT DATE: 201609
